FAERS Safety Report 6286814-4 (Version None)
Quarter: 2009Q3

REPORT INFORMATION
  Report Type: 
  Country: None (occurrence: None)
  Receive Date: 20090728
  Receipt Date: 20090720
  Transmission Date: 20100115
  Serious: Yes (Other)
  Sender: FDA-Public Use
  Company Number: CA-ASTRAZENECA-2009UW21159

PATIENT
  Sex: Male

DRUGS (1)
  1. SEROQUEL [Suspect]
     Route: 048
     Dates: start: 20050101

REACTIONS (6)
  - ASTHENIA [None]
  - DIZZINESS [None]
  - HEART RATE INCREASED [None]
  - HYPOTENSION [None]
  - PALLOR [None]
  - SYNCOPE [None]
